FAERS Safety Report 8991259 (Version 8)
Quarter: 2016Q1

REPORT INFORMATION
  Report Type: Report from Study
  Country: CA (occurrence: CA)
  Receive Date: 20121231
  Receipt Date: 20160113
  Transmission Date: 20160526
  Serious: Yes (Other)
  Sender: FDA-Public Use
  Company Number: CA-ROCHE-1170752

PATIENT
  Age: 71 Year
  Sex: Male
  Weight: 88.09 kg

DRUGS (14)
  1. OMALIZUMAB [Suspect]
     Active Substance: OMALIZUMAB
     Route: 058
     Dates: start: 20130513
  2. OMALIZUMAB [Suspect]
     Active Substance: OMALIZUMAB
     Route: 058
     Dates: start: 20151013
  3. PREDNISONE. [Concomitant]
     Active Substance: PREDNISONE
     Route: 065
  4. PREDNISONE. [Concomitant]
     Active Substance: PREDNISONE
     Route: 065
  5. OMALIZUMAB [Suspect]
     Active Substance: OMALIZUMAB
     Route: 058
     Dates: start: 20140429
  6. OMALIZUMAB [Suspect]
     Active Substance: OMALIZUMAB
     Route: 058
     Dates: start: 20130415
  7. OMALIZUMAB [Suspect]
     Active Substance: OMALIZUMAB
     Route: 058
     Dates: start: 20140204
  8. HYZAAR [Concomitant]
     Active Substance: HYDROCHLOROTHIAZIDE\LOSARTAN POTASSIUM
     Indication: PRODUCT USED FOR UNKNOWN INDICATION
     Dosage: DOSE INCREASED
     Route: 065
     Dates: start: 20070524
  9. OMALIZUMAB [Suspect]
     Active Substance: OMALIZUMAB
     Route: 058
     Dates: start: 20090408
  10. OMALIZUMAB [Suspect]
     Active Substance: OMALIZUMAB
     Route: 058
     Dates: start: 20131028
  11. OMALIZUMAB [Suspect]
     Active Substance: OMALIZUMAB
     Route: 058
     Dates: start: 20150914
  12. OMALIZUMAB [Suspect]
     Active Substance: OMALIZUMAB
     Indication: ASTHMA
     Dosage: 300 MG, 1/MONTH
     Route: 058
     Dates: start: 20060208
  13. OMALIZUMAB [Suspect]
     Active Substance: OMALIZUMAB
     Indication: ASTHMA
     Dosage: 300 MG, 1/MONTH
     Route: 058
     Dates: start: 20091216
  14. IMODIUM [Concomitant]
     Active Substance: LOPERAMIDE HYDROCHLORIDE

REACTIONS (28)
  - Respiratory tract infection [Unknown]
  - Somnolence [Unknown]
  - Candida infection [Unknown]
  - Hypersensitivity [Unknown]
  - Respiratory tract congestion [Unknown]
  - Abdominal pain upper [Recovered/Resolved]
  - Throat irritation [Recovering/Resolving]
  - Tension [Unknown]
  - Eye pruritus [Unknown]
  - Nasopharyngitis [Recovering/Resolving]
  - Dry eye [Unknown]
  - Diarrhoea [Recovered/Resolved]
  - Sputum discoloured [Unknown]
  - Increased upper airway secretion [Unknown]
  - Bronchitis [Unknown]
  - Nasal congestion [Recovered/Resolved]
  - Blood pressure increased [Not Recovered/Not Resolved]
  - Oropharyngeal pain [Unknown]
  - Dyspnoea exertional [Recovered/Resolved]
  - Dyspnoea [Unknown]
  - Breath sounds abnormal [Unknown]
  - Hypoventilation [Not Recovered/Not Resolved]
  - Body temperature decreased [Unknown]
  - Atelectasis [Unknown]
  - Asthma [Unknown]
  - Insomnia [Unknown]
  - Lung disorder [Unknown]
  - Wheezing [Unknown]

NARRATIVE: CASE EVENT DATE: 20151013
